FAERS Safety Report 4786880-9 (Version None)
Quarter: 2005Q4

REPORT INFORMATION
  Report Type: 
  Country: None (occurrence: None)
  Receive Date: 20051004
  Receipt Date: 20050922
  Transmission Date: 20060501
  Serious: Yes (Other)
  Sender: FDA-Public Use
  Company Number: 2005UW14236

PATIENT
  Age: 40 Year
  Sex: Female

DRUGS (2)
  1. SEROQUEL [Suspect]
  2. NOZINAN [Suspect]

REACTIONS (2)
  - DRUG LEVEL DECREASED [None]
  - HALLUCINATION, VISUAL [None]
